FAERS Safety Report 9719182 (Version 2)
Quarter: 2013Q4

REPORT INFORMATION
  Report Type: Spontaneous
  Country: JP (occurrence: JP)
  Receive Date: 20131127
  Receipt Date: 20131212
  Transmission Date: 20140711
  Serious: Yes (Other)
  Sender: FDA-Public Use
  Company Number: PHHY2013JP135627

PATIENT
  Sex: 0

DRUGS (1)
  1. CEFTRIAXONE SANDOZ [Suspect]
     Route: 042

REACTIONS (2)
  - Liver disorder [Recovering/Resolving]
  - Concomitant disease aggravated [Recovering/Resolving]
